FAERS Safety Report 8365846-6 (Version None)
Quarter: 2012Q2

REPORT INFORMATION
  Report Type: 
  Country: None (occurrence: None)
  Receive Date: 20120515
  Receipt Date: 20120430
  Transmission Date: 20120825
  Serious: Yes (Other)
  Sender: FDA-Public Use
  Company Number: 2012MA005576

PATIENT
  Age: 46 Year
  Sex: Male

DRUGS (1)
  1. FEVERALL [Suspect]

REACTIONS (6)
  - TOXICOLOGIC TEST ABNORMAL [None]
  - THERMAL BURN [None]
  - SUICIDE ATTEMPT [None]
  - INTENTIONAL SELF-INJURY [None]
  - INJURY [None]
  - AGGRESSION [None]
